FAERS Safety Report 11864479 (Version 1)
Quarter: 2015Q4

REPORT INFORMATION
  Report Type: Spontaneous
  Country: US (occurrence: None)
  Receive Date: 20151223
  Receipt Date: 20151223
  Transmission Date: 20160305
  Serious: Yes (Hospitalization)
  Sender: FDA-Public Use
  Company Number: None

PATIENT
  Age: 78 Year
  Sex: Male
  Weight: 80.8 kg

DRUGS (4)
  1. ASPIRIN. [Suspect]
     Active Substance: ASPIRIN
     Indication: MYOCARDIAL INFARCTION
     Route: 048
     Dates: end: 20151123
  2. ASPIRIN. [Suspect]
     Active Substance: ASPIRIN
     Indication: TRANSIENT ISCHAEMIC ATTACK
     Route: 048
     Dates: end: 20151123
  3. WARFARIN [Suspect]
     Active Substance: WARFARIN
     Indication: EMBOLIC STROKE
     Dates: start: 20080228, end: 20151125
  4. ASPIRIN. [Suspect]
     Active Substance: ASPIRIN
     Indication: EMBOLIC STROKE
     Route: 048
     Dates: end: 20151123

REACTIONS (5)
  - Melaena [None]
  - Gastric haemorrhage [None]
  - Hypotension [None]
  - International normalised ratio increased [None]
  - Fall [None]

NARRATIVE: CASE EVENT DATE: 20151125
